FAERS Safety Report 25198851 (Version 1)
Quarter: 2025Q2

REPORT INFORMATION
  Report Type: Spontaneous
  Country: US (occurrence: US)
  Receive Date: 20250415
  Receipt Date: 20250415
  Transmission Date: 20250717
  Serious: No
  Sender: ABBVIE
  Company Number: US-ABBVIE-6218721

PATIENT

DRUGS (1)
  1. RINVOQ [Suspect]
     Active Substance: UPADACITINIB
     Indication: Product used for unknown indication
     Route: 048

REACTIONS (10)
  - Anxiety [Unknown]
  - Urticaria [Unknown]
  - Skin burning sensation [Unknown]
  - Fatigue [Unknown]
  - Drug hypersensitivity [Unknown]
  - Skin haemorrhage [Unknown]
  - Skin wound [Unknown]
  - Palpitations [Unknown]
  - Eczema [Unknown]
  - Sensitive skin [Unknown]
